FAERS Safety Report 5330332-4 (Version None)
Quarter: 2007Q2

REPORT INFORMATION
  Report Type: 
  Country: None (occurrence: None)
  Receive Date: 20070521
  Receipt Date: 20070515
  Transmission Date: 20071010
  Serious: Yes (Other)
  Sender: FDA-Public Use
  Company Number: JP-PFIZER INC-2006072186

PATIENT
  Age: 19 Year
  Sex: Male

DRUGS (2)
  1. ATARAX [Suspect]
     Indication: ILL-DEFINED DISORDER
     Route: 048
  2. ALCOHOL [Suspect]
     Indication: ILL-DEFINED DISORDER
     Dosage: FREQ:UNKNOWN
     Route: 065

REACTIONS (4)
  - INTENTIONAL OVERDOSE [None]
  - SOMNOLENCE [None]
  - SUICIDE ATTEMPT [None]
  - VOMITING [None]
